FAERS Safety Report 19711625 (Version 1)
Quarter: 2021Q3

REPORT INFORMATION
  Report Type: Spontaneous
  Country: US (occurrence: US)
  Receive Date: 20210816
  Receipt Date: 20210816
  Transmission Date: 20211014
  Serious: No
  Sender: FDA-Public Use
  Company Number: US-TG THERAPEUTICS INC.-TGT002015

PATIENT
  Age: 74 Year
  Sex: Female
  Weight: 49.21 kg

DRUGS (15)
  1. TRESIBA [Concomitant]
     Active Substance: INSULIN DEGLUDEC
  2. KEPPRA [Concomitant]
     Active Substance: LEVETIRACETAM
  3. METFORMIN [Concomitant]
     Active Substance: METFORMIN HYDROCHLORIDE
  4. LANTUS [Concomitant]
     Active Substance: INSULIN GLARGINE
  5. FOLIC ACID. [Concomitant]
     Active Substance: FOLIC ACID
  6. ASPIRIN [ACETYLSALICYLIC ACID] [Concomitant]
     Active Substance: ASPIRIN
  7. UKONIQ [Suspect]
     Active Substance: UMBRALISIB TOSYLATE
     Indication: PRODUCT USED FOR UNKNOWN INDICATION
     Dosage: 600 MICROGRAM, QD
     Route: 048
     Dates: start: 20210429
  8. AMLODIPINE [Concomitant]
     Active Substance: AMLODIPINE BESYLATE
  9. POTASSIUM [Concomitant]
     Active Substance: POTASSIUM
  10. NADOLOL. [Concomitant]
     Active Substance: NADOLOL
  11. GABAPENTIN. [Concomitant]
     Active Substance: GABAPENTIN
  12. DONEPEZIL. [Concomitant]
     Active Substance: DONEPEZIL
  13. UKONIQ [Suspect]
     Active Substance: UMBRALISIB TOSYLATE
     Dosage: 400 MICROGRAM, QD
     Route: 048
     Dates: start: 202106
  14. ALLOPURINOL. [Concomitant]
     Active Substance: ALLOPURINOL
     Dosage: 100 MILLIGRAM
     Route: 048
  15. ZETIA [Concomitant]
     Active Substance: EZETIMIBE

REACTIONS (1)
  - Drug intolerance [Unknown]

NARRATIVE: CASE EVENT DATE: 20210615
